FAERS Safety Report 4951767-5 (Version None)
Quarter: 2006Q1

REPORT INFORMATION
  Report Type: 
  Country: None (occurrence: None)
  Receive Date: 20060322
  Receipt Date: 20060322
  Transmission Date: 20060701
  Serious: No
  Sender: FDA-Public Use
  Company Number: None

PATIENT
  Age: 5 Year
  Sex: Female

DRUGS (2)
  1. PROTOPIC [Suspect]
     Dosage: 3 TO 4 TIMES/DAY TOP
     Route: 061
  2. CYCLOSPORINE [Concomitant]

REACTIONS (1)
  - DRUG LEVEL INCREASED [None]
